FAERS Safety Report 5723014-8 (Version None)
Quarter: 2008Q2

REPORT INFORMATION
  Report Type: 
  Country: None (occurrence: None)
  Receive Date: 20080428
  Receipt Date: 20080428
  Transmission Date: 20081010
  Serious: Yes (Death, Life-Threatening, Hospitalization)
  Sender: FDA-Public Use
  Company Number: None

PATIENT
  Sex: Female
  Weight: 65.7716 kg

DRUGS (1)
  1. DURAGESIC PATCH  50 MICROGRAMS/HOUR  UNKNOWN [Suspect]
     Indication: PAIN
     Dosage: 50 MICROGRAMS/HOUR  TRANSDERMAL
     Route: 062

REACTIONS (3)
  - AMNESIA [None]
  - OVERDOSE [None]
  - RESPIRATORY ARREST [None]
